FAERS Safety Report 8837167 (Version 4)
Quarter: 2012Q4

REPORT INFORMATION
  Report Type: 
  Country: US (occurrence: US)
  Receive Date: 20121012
  Receipt Date: 20121106
  Transmission Date: 20130627
  Serious: No
  Sender: FDA-Public Use
  Company Number: US-TEVA-363373USA

PATIENT
  Age: 66 Year
  Sex: Female

DRUGS (5)
  1. PROAIR HFA [Suspect]
     Indication: BRONCHITIS
     Dosage: 2 puffs every 4 hours as needed
     Dates: start: 20121002
  2. PROAIR HFA [Suspect]
     Indication: WHEEZING
  3. PROAIR HFA [Suspect]
     Indication: DYSPNOEA
  4. BENZONATATE [Concomitant]
     Indication: BRONCHITIS
     Dosage: TID
  5. MONTELUKAST [Concomitant]
     Indication: BRONCHITIS

REACTIONS (9)
  - Malaise [Recovered/Resolved]
  - Tongue disorder [Recovered/Resolved]
  - Dizziness [Recovered/Resolved]
  - Thinking abnormal [Recovered/Resolved]
  - Hallucination [Recovered/Resolved]
  - Abdominal discomfort [Recovered/Resolved]
  - Diarrhoea [Recovered/Resolved]
  - Dysgeusia [Unknown]
  - Presyncope [Recovered/Resolved]
